FAERS Safety Report 17900833 (Version 1)
Quarter: 2020Q2

REPORT INFORMATION
  Report Type: Report from Study
  Country: NL (occurrence: NL)
  Receive Date: 20200616
  Receipt Date: 20200616
  Transmission Date: 20200714
  Serious: Yes (Hospitalization, Other)
  Sender: FDA-Public Use
  Company Number: NL-TOLMAR, INC.-20NL020500

PATIENT
  Age: 84 Year
  Sex: Male

DRUGS (3)
  1. ELIGARD [Suspect]
     Active Substance: LEUPROLIDE ACETATE
     Dosage: 45 MG, 1X26 WEEKS
     Route: 058
     Dates: start: 20190815
  2. ELIGARD [Suspect]
     Active Substance: LEUPROLIDE ACETATE
     Indication: PROSTATE CANCER
     Dosage: 45 MG, 1X26 WEEKS
     Route: 058
     Dates: start: 20190219
  3. ELIGARD [Suspect]
     Active Substance: LEUPROLIDE ACETATE
     Dosage: 45 MG, 1X26 WEEKS
     Route: 058
     Dates: start: 20200218

REACTIONS (2)
  - Cholelithiasis [Recovered/Resolved with Sequelae]
  - Dementia [Unknown]

NARRATIVE: CASE EVENT DATE: 20191211
